FAERS Safety Report 21897593 (Version 1)
Quarter: 2023Q1

REPORT INFORMATION
  Report Type: Report from Study
  Country: JP (occurrence: JP)
  Receive Date: 20230123
  Receipt Date: 20230123
  Transmission Date: 20230417
  Serious: Yes (Hospitalization, Other)
  Sender: FDA-Public Use
  Company Number: JP-ORPHANEU-2019001388

PATIENT

DRUGS (20)
  1. CYSTADANE [Suspect]
     Active Substance: BETAINE
     Indication: Homocystinuria
     Dosage: 0.65 GRAM DAILY, BID
     Route: 048
     Dates: start: 20151222, end: 20160125
  2. CYSTADANE [Suspect]
     Active Substance: BETAINE
     Dosage: 0.75 GRAM DAILY, BID
     Route: 048
     Dates: start: 20160126, end: 20160222
  3. CYSTADANE [Suspect]
     Active Substance: BETAINE
     Dosage: 1 GRAM DAILY, BID
     Route: 048
     Dates: start: 20160223, end: 20161003
  4. CYSTADANE [Suspect]
     Active Substance: BETAINE
     Dosage: 1.5 GRAM DAILY, BID
     Route: 048
     Dates: start: 20161004, end: 20200217
  5. CYSTADANE [Suspect]
     Active Substance: BETAINE
     Dosage: 2 GRAM DAILY, BID
     Route: 048
     Dates: start: 20200218
  6. TEGRETOL [Concomitant]
     Active Substance: CARBAMAZEPINE
     Indication: Product used for unknown indication
     Dosage: 25 MILLIGRAM, BID
     Route: 048
  7. TEGRETOL [Concomitant]
     Active Substance: CARBAMAZEPINE
     Indication: Disease complication
     Dosage: 40 MILLIGRAM, BID
     Route: 048
     Dates: end: 20160716
  8. TEGRETOL [Concomitant]
     Active Substance: CARBAMAZEPINE
     Dosage: 30 MILLIGRAM, BID
     Route: 048
     Dates: start: 20160717, end: 20160914
  9. TEGRETOL [Concomitant]
     Active Substance: CARBAMAZEPINE
     Dosage: 20 MILLIGRAM, BID
     Route: 048
     Dates: start: 20160915
  10. LEVOCARNITINE HYDROCHLORIDE [Concomitant]
     Active Substance: LEVOCARNITINE HYDROCHLORIDE
     Indication: Product used for unknown indication
     Dosage: 750 MILLIGRAM, TID
     Route: 048
  11. FRESMIN S [HYDROXOCOBALAMIN ACETATE] [Concomitant]
     Indication: Product used for unknown indication
     Dosage: 1000 MICROGRAM, QD
  12. BIOTIN [Concomitant]
     Active Substance: BIOTIN
     Indication: Product used for unknown indication
     Dosage: 0.1 MILLIGRAM, QD
     Route: 048
     Dates: start: 20151228
  13. BIOTIN [Concomitant]
     Active Substance: BIOTIN
     Indication: Product used for unknown indication
     Dosage: 0.1 MILLILITER, QD
     Route: 048
  14. LEVOCARNITINE [Concomitant]
     Active Substance: LEVOCARNITINE
     Indication: Product used for unknown indication
     Dosage: 7.5 MILLILITER, TID
     Route: 048
     Dates: end: 20160711
  15. LEVOCARNITINE [Concomitant]
     Active Substance: LEVOCARNITINE
     Dosage: 10 MILLILITER, TID
     Route: 048
     Dates: start: 20160712, end: 20160914
  16. LEVOCARNITINE [Concomitant]
     Active Substance: LEVOCARNITINE
     Dosage: 15 MILLILITER, TID
     Route: 048
     Dates: start: 20160915, end: 20161220
  17. LEVOCARNITINE [Concomitant]
     Active Substance: LEVOCARNITINE
     Dosage: 5 MILLILITER, TID
     Route: 048
     Dates: start: 20161221
  18. LEVOCARNITINE [Concomitant]
     Active Substance: LEVOCARNITINE
     Dosage: 15 MILLILITER, TID
     Route: 048
  19. BIFIDOBACTERIUM SPP. [Concomitant]
     Active Substance: BIFIDOBACTERIUM SPP.
     Indication: Disease complication
     Dosage: 1.5 GRAM, TID
     Route: 048
     Dates: end: 20170711
  20. BANAN [Concomitant]
     Active Substance: CEFPODOXIME PROXETIL
     Indication: Disease complication
     Dosage: 70 MILLIGRAM, TID
     Route: 048
     Dates: end: 20160624

REACTIONS (1)
  - Enterocolitis [Recovering/Resolving]

NARRATIVE: CASE EVENT DATE: 20161216
